FAERS Safety Report 12482818 (Version 1)
Quarter: 2016Q2

REPORT INFORMATION
  Report Type: Spontaneous
  Country: CA (occurrence: CA)
  Receive Date: 20160620
  Receipt Date: 20160620
  Transmission Date: 20160815
  Serious: Yes (Death, Hospitalization)
  Sender: FDA-Public Use
  Company Number: CA-ACTELION-A-US2016-135783

PATIENT
  Age: 62 Year
  Sex: Female

DRUGS (8)
  1. CARIPUL [Suspect]
     Active Substance: EPOPROSTENOL
     Indication: PULMONARY HYPERTENSION
     Dosage: 3.5 MG, UNK
     Route: 042
     Dates: start: 20160420, end: 20160608
  2. VOLIBRIS [Concomitant]
     Active Substance: AMBRISENTAN
  3. ASA [Concomitant]
     Active Substance: ASPIRIN
  4. OMEPRAZOLE. [Concomitant]
     Active Substance: OMEPRAZOLE
  5. FUROSEMIDE. [Concomitant]
     Active Substance: FUROSEMIDE
  6. ALVESCO [Concomitant]
     Active Substance: CICLESONIDE
  7. POTASSIUM [Concomitant]
     Active Substance: POTASSIUM
  8. SALBUTAMOL [Concomitant]
     Active Substance: ALBUTEROL

REACTIONS (2)
  - General physical health deterioration [Not Recovered/Not Resolved]
  - Death [Fatal]

NARRATIVE: CASE EVENT DATE: 20160608
